FAERS Safety Report 9238600 (Version 1)
Quarter: 2013Q2

REPORT INFORMATION
  Report Type: Spontaneous
  Country: DE (occurrence: DE)
  Receive Date: 20130418
  Receipt Date: 20130418
  Transmission Date: 20140414
  Serious: Yes (Other)
  Sender: FDA-Public Use
  Company Number: DE-UCBSA-082840

PATIENT
  Sex: Female
  Weight: 65 kg

DRUGS (1)
  1. KEPPRA [Suspect]
     Dosage: TOTAL DOSE: 22,500 MG (30 TABLETS)
     Route: 048

REACTIONS (4)
  - Suicide attempt [Unknown]
  - Somnolence [Unknown]
  - Feeling abnormal [Unknown]
  - Overdose [Unknown]
